FAERS Safety Report 4328237-0 (Version None)
Quarter: 2004Q1

REPORT INFORMATION
  Report Type: 
  Country: None (occurrence: None)
  Receive Date: 20040319
  Receipt Date: 20040122
  Transmission Date: 20041129
  Serious: No
  Sender: FDA-Public Use
  Company Number: US-JNJFOC-20040105048

PATIENT
  Age: 14 Month
  Sex: Female

DRUGS (1)
  1. ORTHO EVRA [Suspect]
     Indication: MEDICATION ERROR
     Dosage: 1 DOSE(S), 1 IN 1 TOTAL, ORAL
     Route: 048

REACTIONS (1)
  - MEDICATION ERROR [None]
